FAERS Safety Report 13065309 (Version 2)
Quarter: 2016Q4

REPORT INFORMATION
  Report Type: Report from Study
  Country: PK (occurrence: PK)
  Receive Date: 20161227
  Receipt Date: 20161229
  Transmission Date: 20170207
  Serious: Yes (Death)
  Sender: FDA-Public Use
  Company Number: PHHY2016PK178162

PATIENT
  Sex: Male
  Weight: 85 kg

DRUGS (2)
  1. GLIVEC [Suspect]
     Active Substance: IMATINIB MESYLATE
     Indication: CHRONIC MYELOID LEUKAEMIA
     Dosage: 400 MG, QD
     Route: 048
     Dates: start: 20140619, end: 20161226
  2. GLIVEC [Suspect]
     Active Substance: IMATINIB MESYLATE
     Dosage: 600 MG, QD
     Route: 048
     Dates: start: 20161226

REACTIONS (3)
  - White blood cell count increased [Unknown]
  - Death [Fatal]
  - Haemoglobin decreased [Unknown]
